FAERS Safety Report 14892493 (Version 15)
Quarter: 2019Q1

REPORT INFORMATION
  Report Type: Spontaneous
  Country: CA (occurrence: CA)
  Receive Date: 20180514
  Receipt Date: 20190314
  Transmission Date: 20190417
  Serious: Yes (Other)
  Sender: FDA-Public Use
  Company Number: CA-CELLTRION INC.-2018CA019734

PATIENT

DRUGS (12)
  1. INFLECTRA [Suspect]
     Active Substance: INFLIXIMAB-DYYB
     Dosage: 500 MG, 0, 2, 6, THEN EVERY 8 WEEKS
     Route: 042
     Dates: start: 20180509, end: 20180509
  2. INFLECTRA [Suspect]
     Active Substance: INFLIXIMAB-DYYB
     Dosage: 500 MG, 6 WEEKS, THEN EVERY 8 WEEKS
     Route: 042
     Dates: start: 20180802, end: 20180802
  3. INFLECTRA [Suspect]
     Active Substance: INFLIXIMAB-DYYB
     Indication: COLITIS ULCERATIVE
     Dosage: 500 MG, EVERY 0, 2, 6 THEN EVERY 8 WEEKS
     Route: 042
     Dates: start: 20180425, end: 20180425
  4. INFLECTRA [Suspect]
     Active Substance: INFLIXIMAB-DYYB
     Dosage: 500 MG, 6 WEEKS, THEN EVERY 8 WEEKS
     Route: 042
     Dates: start: 20180614, end: 20180614
  5. INFLECTRA [Suspect]
     Active Substance: INFLIXIMAB-DYYB
     Dosage: 500 MG, 14 WEEKS AFTER LAST INFUSION
     Route: 042
     Dates: start: 20181106, end: 20181106
  6. LANTUS [Concomitant]
     Active Substance: INSULIN GLARGINE
     Dosage: 50 UNITS
  7. HYDROCORTISONE. [Concomitant]
     Active Substance: HYDROCORTISONE
     Indication: PREMEDICATION
  8. INFLECTRA [Suspect]
     Active Substance: INFLIXIMAB-DYYB
     Dosage: 500 MG, EVERY 6 WEEKS, THEN EVERY 8 WEEKS
     Route: 042
     Dates: start: 20190227
  9. NOVORAPID [Concomitant]
     Active Substance: INSULIN ASPART
     Dosage: 75 UNITS, SLIDING SCALE
  10. RANITIDINE. [Concomitant]
     Active Substance: RANITIDINE
     Dosage: 150 MG, DAILY
     Route: 048
  11. INFLECTRA [Suspect]
     Active Substance: INFLIXIMAB-DYYB
     Dosage: 500 MG, UNK
     Route: 042
     Dates: start: 20190102
  12. BENADRYL [Concomitant]
     Active Substance: DIPHENHYDRAMINE HYDROCHLORIDE
     Indication: PREMEDICATION
     Dosage: UNK

REACTIONS (12)
  - Nasopharyngitis [Recovered/Resolved]
  - Product use issue [Unknown]
  - Streptococcal infection [Not Recovered/Not Resolved]
  - Hypertension [Unknown]
  - Rash [Recovering/Resolving]
  - Melanocytic naevus [Unknown]
  - Tachycardia [Unknown]
  - Condition aggravated [Not Recovered/Not Resolved]
  - Blood pressure fluctuation [Unknown]
  - Insomnia [Not Recovered/Not Resolved]
  - Herpes zoster [Recovering/Resolving]
  - Tremor [Unknown]

NARRATIVE: CASE EVENT DATE: 20180503
